FAERS Safety Report 11568725 (Version 1)
Quarter: 2015Q3

REPORT INFORMATION
  Report Type: Spontaneous
  Country: US (occurrence: None)
  Receive Date: 20150928
  Receipt Date: 20150928
  Transmission Date: 20151125
  Serious: Yes (Death)
  Sender: FDA-Public Use
  Company Number: None

PATIENT
  Age: 77 Year
  Sex: Male
  Weight: 87.3 kg

DRUGS (4)
  1. ENOXAPARIN 100 MG [Suspect]
     Active Substance: ENOXAPARIN
  2. HEPARIN [Concomitant]
     Active Substance: HEPARIN SODIUM
  3. ASPIRIN. [Concomitant]
     Active Substance: ASPIRIN
  4. WARFARIN 2.5 MG [Suspect]
     Active Substance: WARFARIN
     Indication: ANTICOAGULANT THERAPY

REACTIONS (3)
  - Haemorrhage intracranial [None]
  - Unresponsive to stimuli [None]
  - Brain midline shift [None]

NARRATIVE: CASE EVENT DATE: 20150715
